FAERS Safety Report 21747270 (Version 2)
Quarter: 2022Q4

REPORT INFORMATION
  Report Type: Spontaneous
  Country: US (occurrence: US)
  Receive Date: 20221219
  Receipt Date: 20221222
  Transmission Date: 20230113
  Serious: No
  Sender: FDA-Public Use
  Company Number: US-002147023-NVSC2022US290523

PATIENT
  Sex: Male

DRUGS (1)
  1. EGATEN [Suspect]
     Active Substance: TRICLABENDAZOLE
     Indication: Product used for unknown indication
     Dosage: 250 MG
     Route: 065

REACTIONS (5)
  - Rash [Not Recovered/Not Resolved]
  - Gallbladder disorder [Unknown]
  - Pruritus [Unknown]
  - Diarrhoea [Unknown]
  - Nausea [Unknown]
